FAERS Safety Report 15606763 (Version 2)
Quarter: 2019Q1

REPORT INFORMATION
  Report Type: Spontaneous
  Country: CZ (occurrence: CZ)
  Receive Date: 20181112
  Receipt Date: 20190124
  Transmission Date: 20190417
  Serious: Yes (Death, Hospitalization, Other)
  Sender: FDA-Public Use
  Company Number: CZ-ROCHE-2213711

PATIENT
  Age: 7 Year
  Sex: Female

DRUGS (4)
  1. CEFOTAXIME [Suspect]
     Active Substance: CEFOTAXIME SODIUM
     Indication: PNEUMONIA PNEUMOCOCCAL
     Route: 065
  2. PENICILLIN G BENZATHINE [Suspect]
     Active Substance: PENICILLIN G BENZATHINE
     Indication: PRODUCT USED FOR UNKNOWN INDICATION
     Route: 065
  3. TAMIFLU [Suspect]
     Active Substance: OSELTAMIVIR PHOSPHATE
     Indication: INFLUENZA
     Route: 048
  4. AMOKSIKLAV [Suspect]
     Active Substance: AMOXICILLIN\CLAVULANATE POTASSIUM
     Indication: PNEUMONIA
     Route: 048

REACTIONS (21)
  - Circulatory collapse [Fatal]
  - Hypoxia [Unknown]
  - Tachypnoea [Unknown]
  - Haemothorax [Fatal]
  - Respiratory failure [Fatal]
  - Influenza A virus test positive [Fatal]
  - Pneumonia necrotising [Unknown]
  - Pulmonary necrosis [Unknown]
  - Inflammation [Unknown]
  - Drug ineffective [Fatal]
  - Hypercapnia [Unknown]
  - Procalcitonin increased [Unknown]
  - Pleural effusion [Unknown]
  - Pneumonia streptococcal [Fatal]
  - Cardiac failure [Fatal]
  - Renal impairment [Unknown]
  - Leukopenia [Unknown]
  - Dehydration [Unknown]
  - Pneumothorax [Fatal]
  - Pneumonia [Fatal]
  - Transaminases increased [Unknown]
